FAERS Safety Report 23653506 (Version 1)
Quarter: 2024Q1

REPORT INFORMATION
  Report Type: Spontaneous
  Country: US (occurrence: US)
  Receive Date: 20240320
  Receipt Date: 20240320
  Transmission Date: 20240409
  Serious: No
  Sender: FDA-Public Use
  Company Number: US-PFIZER INC-202400065824

PATIENT
  Age: 68 Year
  Sex: Female
  Weight: 76.66 kg

DRUGS (4)
  1. LORBRENA [Suspect]
     Active Substance: LORLATINIB
     Indication: Lung neoplasm malignant
     Dosage: 100 MG
     Dates: start: 202208
  2. LORBRENA [Suspect]
     Active Substance: LORLATINIB
     Dosage: TAKES 3- 25MG TABLETS FOR TOTAL OF 75MG ONCE A DAY SWALLOWED WITH WATER
     Route: 048
     Dates: start: 202305
  3. BETAMETHASONE ACETATE\BETAMETHASONE SODIUM PHOSPHATE [Suspect]
     Active Substance: BETAMETHASONE ACETATE\BETAMETHASONE SODIUM PHOSPHATE
     Dosage: UNK
     Dates: start: 20230911
  4. ASPIRIN [Concomitant]
     Active Substance: ASPIRIN
     Indication: Inflammation

REACTIONS (1)
  - Blood cholesterol increased [Not Recovered/Not Resolved]

NARRATIVE: CASE EVENT DATE: 20231101
